FAERS Safety Report 24023806 (Version 3)
Quarter: 2024Q3

REPORT INFORMATION
  Report Type: Report from Study
  Country: US (occurrence: US)
  Receive Date: 20240627
  Receipt Date: 20240710
  Transmission Date: 20241017
  Serious: No
  Sender: ROCHE
  Company Number: US-ROCHE-2836673

PATIENT
  Age: 68 Year
  Sex: Female

DRUGS (29)
  1. ALECENSA [Suspect]
     Active Substance: ALECTINIB HYDROCHLORIDE
     Indication: Lung neoplasm malignant
     Dosage: TAKE 4 CAPSULE(S) BY MOUTH TWICE A DAY WITH BREAKFAST AND?DINNER
     Route: 048
     Dates: start: 20210315
  2. ALECENSA [Suspect]
     Active Substance: ALECTINIB HYDROCHLORIDE
     Indication: Anxiety disorder
     Dosage: TAKE 3 CAPSULE(S) BY MOUTH TWICE A DAY WITH BREAKFAST AND?DINNER
     Route: 048
  3. ALECENSA [Suspect]
     Active Substance: ALECTINIB HYDROCHLORIDE
     Indication: Asthma
     Route: 048
  4. ALECENSA [Suspect]
     Active Substance: ALECTINIB HYDROCHLORIDE
     Indication: Back pain
  5. ALECENSA [Suspect]
     Active Substance: ALECTINIB HYDROCHLORIDE
     Indication: Cough
  6. ALECENSA [Suspect]
     Active Substance: ALECTINIB HYDROCHLORIDE
     Indication: Diarrhoea
  7. ALECENSA [Suspect]
     Active Substance: ALECTINIB HYDROCHLORIDE
     Indication: Dizziness
  8. ALECENSA [Suspect]
     Active Substance: ALECTINIB HYDROCHLORIDE
     Indication: Gastrooesophageal reflux disease
  9. ALECENSA [Suspect]
     Active Substance: ALECTINIB HYDROCHLORIDE
     Indication: Hyperlipidaemia
  10. ALECENSA [Suspect]
     Active Substance: ALECTINIB HYDROCHLORIDE
     Indication: Essential hypertension
  11. ALECENSA [Suspect]
     Active Substance: ALECTINIB HYDROCHLORIDE
     Indication: Lung neoplasm malignant
  12. ALECENSA [Suspect]
     Active Substance: ALECTINIB HYDROCHLORIDE
     Indication: Senile osteoporosis
  13. OXYCODONE [Concomitant]
     Active Substance: OXYCODONE
  14. TYLENOL [Concomitant]
     Active Substance: ACETAMINOPHEN
  15. PROAIR HFA [Concomitant]
     Active Substance: ALBUTEROL SULFATE
  16. FOSAMAX [Concomitant]
     Active Substance: ALENDRONATE SODIUM
  17. NORVASC [Concomitant]
     Active Substance: AMLODIPINE BESYLATE
  18. LIPITOR [Concomitant]
     Active Substance: ATORVASTATIN CALCIUM
  19. TESSALON [Concomitant]
     Active Substance: BENZONATATE
  20. VITAMIN D3 [Concomitant]
     Active Substance: CHOLECALCIFEROL
  21. IMODIUM [Concomitant]
     Active Substance: LOPERAMIDE HYDROCHLORIDE
  22. ANTIVERT [Concomitant]
     Active Substance: MECLIZINE HYDROCHLORIDE
  23. LOPRESSOR [Concomitant]
     Active Substance: METOPROLOL TARTRATE
  24. NAPROSYN [Concomitant]
     Active Substance: NAPROXEN
  25. PROTONIX [Concomitant]
     Active Substance: PANTOPRAZOLE SODIUM
  26. PAXIL [Concomitant]
     Active Substance: PAROXETINE HYDROCHLORIDE
  27. MIRALAX [Concomitant]
     Active Substance: POLYETHYLENE GLYCOL 3350
  28. DELTASONE [Concomitant]
     Active Substance: PREDNISONE
  29. SENNA LAXATIVE [Concomitant]
     Active Substance: SENNOSIDES

REACTIONS (3)
  - Visual impairment [Unknown]
  - Hypersensitivity [Unknown]
  - Feeling abnormal [Unknown]
